FAERS Safety Report 24381797 (Version 3)
Quarter: 2025Q4

REPORT INFORMATION
  Report Type: Spontaneous
  Country: EU (occurrence: EU)
  Receive Date: 20241001
  Receipt Date: 20251209
  Transmission Date: 20260118
  Serious: Yes (Life-Threatening, Hospitalization, Other)
  Sender: BRISTOL-MYERS SQUIBB COMPANY
  Company Number: EU-BRISTOL-MYERS SQUIBB COMPANY-2024-154145

PATIENT
  Age: 65 Year
  Sex: Female

DRUGS (2)
  1. OPDIVO [Suspect]
     Active Substance: NIVOLUMAB
     Indication: Non-small cell lung cancer
  2. OPDIVO [Suspect]
     Active Substance: NIVOLUMAB
     Indication: Squamous cell carcinoma of lung

REACTIONS (8)
  - Hyperglycaemic hyperosmolar nonketotic syndrome [Unknown]
  - Diabetes mellitus [Unknown]
  - Anxiety [Unknown]
  - Lethargy [Unknown]
  - Insomnia [Recovering/Resolving]
  - Memory impairment [Unknown]
  - Sarcoidosis [Unknown]
  - Mycobacterium tuberculosis complex test positive [Unknown]
